FAERS Safety Report 4478398-8 (Version None)
Quarter: 2004Q4

REPORT INFORMATION
  Report Type: 
  Country: None (occurrence: None)
  Receive Date: 20041019
  Receipt Date: 20041012
  Transmission Date: 20050328
  Serious: Yes (Death)
  Sender: FDA-Public Use
  Company Number: US-JNJFOC-20040606144

PATIENT
  Sex: Female
  Weight: 136.08 kg

DRUGS (2)
  1. DURAGESIC [Suspect]
     Route: 062
  2. ZANAFLEX [Concomitant]
     Dosage: NIGHTLY
     Dates: end: 20040101

REACTIONS (1)
  - DEATH [None]
